FAERS Safety Report 19816962 (Version 1)
Quarter: 2021Q3

REPORT INFORMATION
  Report Type: Spontaneous
  Country: US (occurrence: US)
  Receive Date: 20210910
  Receipt Date: 20210910
  Transmission Date: 20211014
  Serious: No
  Sender: FDA-Public Use
  Company Number: US-NKFPHARMA-2021MPSPO00040

PATIENT
  Age: 77 Year
  Sex: Female

DRUGS (3)
  1. ENOXAPARIN SODIUM INJECTION, USP 80MG/0.8ML (100MG PER ML) [Suspect]
     Active Substance: ENOXAPARIN SODIUM
     Indication: PRODUCT USED FOR UNKNOWN INDICATION
     Route: 058
     Dates: start: 20210815
  2. WARFARIN [Concomitant]
     Active Substance: WARFARIN
  3. ENOXAPARIN SODIUM INJECTION, USP 80MG/0.8ML (100MG PER ML) [Suspect]
     Active Substance: ENOXAPARIN SODIUM

REACTIONS (2)
  - Product administration error [Unknown]
  - Product quality issue [Unknown]
